FAERS Safety Report 25272415 (Version 1)
Quarter: 2025Q2

REPORT INFORMATION
  Report Type: Report from Study
  Country: US (occurrence: US)
  Receive Date: 20250506
  Receipt Date: 20250506
  Transmission Date: 20250717
  Serious: Yes (Other)
  Sender: ABBVIE
  Company Number: US-ABBVIE-6256986

PATIENT
  Age: 70 Year
  Sex: Female
  Weight: 73.481 kg

DRUGS (7)
  1. OZURDEX [Suspect]
     Active Substance: DEXAMETHASONE
     Indication: Retinal vein occlusion
     Dosage: START DATE TEXT: 2022 OR 2023
     Route: 065
     Dates: end: 2023
  2. OZURDEX [Suspect]
     Active Substance: DEXAMETHASONE
     Route: 065
     Dates: start: 2024
  3. HYDRALAZINE [Concomitant]
     Active Substance: HYDRALAZINE HYDROCHLORIDE
     Indication: Blood pressure measurement
  4. OMEPRAZOLE [Concomitant]
     Active Substance: OMEPRAZOLE
     Indication: Gastrooesophageal reflux disease
  5. METOPROLOL [Concomitant]
     Active Substance: METOPROLOL
     Indication: Blood pressure measurement
  6. EYLEA [Concomitant]
     Active Substance: AFLIBERCEPT
     Indication: Retinal vein occlusion
  7. LOSARTAN [Concomitant]
     Active Substance: LOSARTAN
     Indication: Blood pressure measurement

REACTIONS (9)
  - Eye infection [Recovered/Resolved]
  - Eye swelling [Recovered/Resolved]
  - Blindness unilateral [Recovered/Resolved]
  - Eye pain [Recovered/Resolved]
  - Eye irritation [Recovered/Resolved]
  - Therapeutic product effect incomplete [Not Recovered/Not Resolved]
  - Vision blurred [Recovering/Resolving]
  - Visual impairment [Recovered/Resolved]
  - Intraocular pressure increased [Recovered/Resolved]

NARRATIVE: CASE EVENT DATE: 20230101
